FAERS Safety Report 6525747-2 (Version None)
Quarter: 2009Q4

REPORT INFORMATION
  Report Type: 
  Country: None (occurrence: None)
  Receive Date: 20091228
  Receipt Date: 20091209
  Transmission Date: 20100525
  Serious: Yes (Death, Hospitalization)
  Sender: FDA-Public Use
  Company Number: 1-20982469

PATIENT
  Age: 53 Year
  Sex: Female
  Weight: 79.8331 kg

DRUGS (3)
  1. ACETAZOLAMIDE [Suspect]
     Indication: NEUROLOGICAL SYMPTOM
     Dosage: 250 MG, 3X/DAY, ORAL
     Route: 048
     Dates: start: 20060517, end: 20060525
  2. PREDNISOLONE [Concomitant]
  3. SUNITINIB MALATE [Concomitant]

REACTIONS (8)
  - ARRHYTHMIA [None]
  - CARDIAC FAILURE CHRONIC [None]
  - CARDIOMYOPATHY [None]
  - CARDIOPULMONARY FAILURE [None]
  - GENERAL PHYSICAL HEALTH DETERIORATION [None]
  - LUNG NEOPLASM MALIGNANT [None]
  - PERICARDITIS [None]
  - VENTRICULAR ARRHYTHMIA [None]
